FAERS Safety Report 21159070 (Version 1)
Quarter: 2022Q3

REPORT INFORMATION
  Report Type: Spontaneous
  Country: SE (occurrence: SE)
  Receive Date: 20220802
  Receipt Date: 20220802
  Transmission Date: 20221027
  Serious: Yes (Hospitalization)
  Sender: FDA-Public Use
  Company Number: None

PATIENT
  Age: 47 Year
  Sex: Male

DRUGS (22)
  1. RENVELA [Concomitant]
     Active Substance: SEVELAMER CARBONATE
     Dosage: 1X3
     Dates: start: 20220104
  2. LINAGLIPTIN [Concomitant]
     Active Substance: LINAGLIPTIN
     Dosage: 1X1
     Dates: start: 20211103, end: 202207
  3. PRAMIPEXOLE [Concomitant]
     Active Substance: PRAMIPEXOLE
     Dosage: 1X1
     Dates: start: 20200303
  4. VALSARTAN [Concomitant]
     Active Substance: VALSARTAN
     Dosage: 1X1
     Dates: start: 20220201, end: 202207
  5. ALBUTEROL SULFATE [Concomitant]
     Active Substance: ALBUTEROL SULFATE
     Dosage: 1 UNK
     Dates: start: 20210511
  6. AMLODIPINE [Concomitant]
     Active Substance: AMLODIPINE BESYLATE
     Dosage: 5 MG, 1X1
     Dates: start: 20211208
  7. METOLAZONE [Concomitant]
     Active Substance: METOLAZONE
     Dosage: M?NDAGAR SAMT OM KROPPSVIKT ?R ?VER 125 KG, ?VEN FREDAGAR
     Dates: start: 20211208, end: 202207
  8. ISONOVA [Concomitant]
     Dosage: 2X1
     Dates: start: 20210325
  9. OZEMPIC [Suspect]
     Active Substance: SEMAGLUTIDE
     Indication: Type 2 diabetes mellitus
     Dosage: 1 MG, QW
     Route: 058
     Dates: start: 20220502, end: 20220701
  10. OZEMPIC [Suspect]
     Active Substance: SEMAGLUTIDE
     Indication: Obesity
  11. OMEPRAZOLE [Concomitant]
     Active Substance: OMEPRAZOLE
     Dosage: 20 MG, 1X1
     Dates: start: 20170411
  12. ATORVASTATIN [Concomitant]
     Active Substance: ATORVASTATIN
     Dosage: 20 MG, 1X1
     Dates: start: 20181222
  13. BUDESONIDE [Concomitant]
     Active Substance: BUDESONIDE
     Dosage: 1X2
     Dates: start: 20210511
  14. MINIFOM [Concomitant]
     Dosage: 200 MG, 1X1
     Dates: start: 20190326
  15. FENURIL [Concomitant]
     Dosage: 1 UNK
     Dates: start: 20220202
  16. SPIRONOLACTONE [Concomitant]
     Active Substance: SPIRONOLACTONE
     Dosage: 25 MG, 1X1
     Dates: start: 20190806, end: 202207
  17. BONDIL [Concomitant]
     Dosage: 1 UNK
     Dates: start: 20220202
  18. ALPROSTADIL [Concomitant]
     Active Substance: ALPROSTADIL
     Dosage: 1 UNK
     Dates: start: 20220203
  19. LEVOTHYROXINE SODIUM [Concomitant]
     Active Substance: LEVOTHYROXINE SODIUM
     Dosage: 1X1
     Dates: start: 20191025
  20. ELIQUIS [Concomitant]
     Active Substance: APIXABAN
     Dosage: 1X2
     Dates: start: 20190920, end: 202207
  21. ALLOPURINOL [Concomitant]
     Active Substance: ALLOPURINOL
     Dosage: 1X1
     Dates: start: 20211103
  22. METOPROLOL [Concomitant]
     Active Substance: METOPROLOL
     Dosage: 100 MG, 2X1
     Dates: start: 20210216

REACTIONS (4)
  - Acute kidney injury [Recovering/Resolving]
  - Dehydration [Recovered/Resolved]
  - Nausea [Recovered/Resolved]
  - Vomiting [Recovered/Resolved]

NARRATIVE: CASE EVENT DATE: 20220101
